FAERS Safety Report 7242236-0 (Version None)
Quarter: 2011Q1

REPORT INFORMATION
  Report Type: 
  Country: None (occurrence: None)
  Receive Date: 20110124
  Receipt Date: 20110119
  Transmission Date: 20110831
  Serious: Yes (Other)
  Sender: FDA-Public Use
  Company Number: DE-MERCK-1005DEU00065

PATIENT
  Age: 63 Year
  Sex: Male

DRUGS (2)
  1. ZOLEDRONIC ACID [Suspect]
     Indication: OSTEOPOROSIS
     Route: 041
     Dates: start: 20080610
  2. FOSAMAX [Suspect]
     Indication: OSTEOPOROSIS
     Route: 048
     Dates: start: 20041216, end: 20080205

REACTIONS (9)
  - PERIODONTITIS [None]
  - MYALGIA [None]
  - GASTROINTESTINAL DISORDER [None]
  - SKIN DISORDER [None]
  - GINGIVAL DISORDER [None]
  - TEMPOROMANDIBULAR JOINT SYNDROME [None]
  - TOOTH DISORDER [None]
  - JAW FRACTURE [None]
  - OSTEONECROSIS OF JAW [None]
